FAERS Safety Report 8891403 (Version 1)
Quarter: 2012Q4

REPORT INFORMATION
  Report Type: Spontaneous
  Country: US (occurrence: None)
  Receive Date: 20121105
  Receipt Date: 20121105
  Transmission Date: 20130627
  Serious: No
  Sender: FDA-Public Use
  Company Number: None

PATIENT
  Age: 32 Year
  Sex: Female
  Weight: 88.91 kg

DRUGS (3)
  1. HYDROCODONE BITARTRATE [Suspect]
     Indication: MUSCULOSKELETAL PAIN
     Route: 048
     Dates: start: 20110720, end: 20121010
  2. LYRICA [Concomitant]
  3. DEMEROL [Concomitant]

REACTIONS (4)
  - Drug ineffective [None]
  - Swelling [None]
  - Pain in extremity [None]
  - Back pain [None]
